FAERS Safety Report 6511875-4 (Version None)
Quarter: 2009Q4

REPORT INFORMATION
  Report Type: 
  Country: None (occurrence: None)
  Receive Date: 20091222
  Receipt Date: 20090619
  Transmission Date: 20100525
  Serious: No
  Sender: FDA-Public Use
  Company Number: US-ASTRAZENECA-2009UW16275

PATIENT
  Age: 84 Year
  Sex: Female
  Weight: 46.3 kg

DRUGS (4)
  1. CRESTOR [Suspect]
     Dosage: 10 MG
     Route: 048
     Dates: end: 20081201
  2. FISH OIL [Concomitant]
  3. SYNTHROID [Concomitant]
  4. VITAMINS [Concomitant]

REACTIONS (4)
  - DIZZINESS [None]
  - FATIGUE [None]
  - MUSCLE SPASMS [None]
  - TINNITUS [None]
